FAERS Safety Report 13073708 (Version 1)
Quarter: 2016Q4

REPORT INFORMATION
  Report Type: Spontaneous
  Country: BG (occurrence: BG)
  Receive Date: 20161229
  Receipt Date: 20161229
  Transmission Date: 20170207
  Serious: Yes (Hospitalization, Other)
  Sender: FDA-Public Use
  Company Number: BG-SHIRE-BG201611454

PATIENT
  Age: 17 Year
  Sex: Male
  Weight: 36 kg

DRUGS (2)
  1. ELAPRASE [Suspect]
     Active Substance: IDURSULFASE
     Indication: MUCOPOLYSACCHARIDOSIS II
     Dosage: 0.5 MG/KG, 1X/WEEK
     Route: 041
     Dates: start: 2013, end: 20160824
  2. KEPPRA [Concomitant]
     Active Substance: LEVETIRACETAM
     Indication: EPILEPSY
     Dosage: UNK UNK (2X750MG), UNKNOWN
     Route: 065

REACTIONS (2)
  - Disease progression [Not Recovered/Not Resolved]
  - Upper airway obstruction [Not Recovered/Not Resolved]

NARRATIVE: CASE EVENT DATE: 20160820
